FAERS Safety Report 11222233 (Version 1)
Quarter: 2015Q2

REPORT INFORMATION
  Report Type: Spontaneous
  Country: PT (occurrence: PT)
  Receive Date: 20150626
  Receipt Date: 20150626
  Transmission Date: 20150821
  Serious: Yes (Death, Hospitalization)
  Sender: FDA-Public Use
  Company Number: PT-JNJFOC-20150617810

PATIENT
  Age: 55 Year
  Sex: Female

DRUGS (1)
  1. INFLIXIMAB, RECOMBINANT [Suspect]
     Active Substance: INFLIXIMAB
     Indication: INTESTINAL PERFORATION
     Route: 042

REACTIONS (4)
  - Therapeutic response unexpected [Unknown]
  - Cytomegalovirus colitis [Unknown]
  - Pneumonia [Fatal]
  - Product use issue [Unknown]
